FAERS Safety Report 24542051 (Version 1)
Quarter: 2024Q4

REPORT INFORMATION
  Report Type: Spontaneous
  Country: BR (occurrence: BR)
  Receive Date: 20241023
  Receipt Date: 20241023
  Transmission Date: 20250114
  Serious: Yes (Life-Threatening, Hospitalization, Disabling, Other)
  Sender: NOVO NORDISK
  Company Number: BR-NOVOPROD-1302676

PATIENT
  Age: 42 Year
  Sex: Male
  Weight: 116 kg

DRUGS (5)
  1. NOVOLIN N [Suspect]
     Active Substance: INSULIN HUMAN
     Indication: Type 1 diabetes mellitus
     Dosage: UNK
  2. NOVOLIN N [Suspect]
     Active Substance: INSULIN HUMAN
     Indication: Type 1 diabetes mellitus
     Dosage: UNK
     Dates: start: 2017
  3. NOVOLIN N [Suspect]
     Active Substance: INSULIN HUMAN
     Dosage: 90 IU, QD (40 UNITS MORNING; 30 LUNCH UNITS; 20 UNITS DINNER) (DOSE INCREASED)
  4. NOVOLIN R [Suspect]
     Active Substance: INSULIN HUMAN
     Indication: Type 1 diabetes mellitus
     Dosage: UNK
  5. NOVOLIN R [Suspect]
     Active Substance: INSULIN HUMAN
     Indication: Type 1 diabetes mellitus
     Dosage: UNK
     Dates: start: 2017

REACTIONS (6)
  - Cardio-respiratory arrest [Recovered/Resolved]
  - Coma [Recovered/Resolved]
  - Hyperglycaemia [Recovered/Resolved]
  - Haemodialysis [Not Recovered/Not Resolved]
  - Blindness [Not Recovered/Not Resolved]
  - Wrong technique in product usage process [Unknown]

NARRATIVE: CASE EVENT DATE: 20160101
